FAERS Safety Report 4459714-X (Version None)
Quarter: 2004Q3

REPORT INFORMATION
  Report Type: 
  Country: None (occurrence: None)
  Receive Date: 20040923
  Receipt Date: 20040913
  Transmission Date: 20050211
  Serious: Yes (Death, Hospitalization)
  Sender: FDA-Public Use
  Company Number: 2004S1000047

PATIENT
  Age: 70 Year
  Sex: Male
  Weight: 48.0813 kg

DRUGS (4)
  1. OXANDRIN [Suspect]
     Indication: WEIGHT DECREASED
     Dosage: 10 MG; QID; PO
     Route: 048
     Dates: start: 20040801, end: 20040829
  2. PROSCAR [Concomitant]
  3. FLOMAX [Concomitant]
  4. ALBUTEROL W/IPRATROPIUM BUDESONIDE [Concomitant]

REACTIONS (2)
  - ASTHENIA [None]
  - MYOCARDIAL INFARCTION [None]
